FAERS Safety Report 5063508-4 (Version None)
Quarter: 2006Q3

REPORT INFORMATION
  Report Type: 
  Country: None (occurrence: None)
  Receive Date: 20060727
  Receipt Date: 20060719
  Transmission Date: 20061208
  Serious: Yes (Other)
  Sender: FDA-Public Use
  Company Number: PHBS2006NO10893

PATIENT
  Age: 12 Year
  Sex: Male

DRUGS (2)
  1. DEXIDRINE [Concomitant]
     Dosage: 12.5 MG/D
     Route: 046
  2. RITALIN [Suspect]
     Indication: ATTENTION DEFICIT/HYPERACTIVITY DISORDER
     Dosage: 10 MG, QID
     Route: 048
     Dates: start: 20021001, end: 20030301

REACTIONS (2)
  - HALLUCINATION, VISUAL [None]
  - INITIAL INSOMNIA [None]
